FAERS Safety Report 17395546 (Version 1)
Quarter: 2020Q1

REPORT INFORMATION
  Report Type: Report from Study
  Country: US (occurrence: US)
  Receive Date: 20200210
  Receipt Date: 20200210
  Transmission Date: 20200409
  Serious: Yes (Death, Hospitalization)
  Sender: FDA-Public Use
  Company Number: US-TEVA-2020-US-1182761

PATIENT
  Age: 14 Year
  Sex: Male

DRUGS (2)
  1. GUANFACINE. [Suspect]
     Active Substance: GUANFACINE
     Route: 048
  2. ATROPINE. [Suspect]
     Active Substance: ATROPINE
     Route: 065

REACTIONS (8)
  - Tachycardia [Fatal]
  - Coma [Fatal]
  - Respiratory arrest [Fatal]
  - Bradycardia [Fatal]
  - Cardiac arrest [Fatal]
  - Intentional product use issue [Fatal]
  - Drug ineffective [Fatal]
  - Hypotension [Fatal]
